FAERS Safety Report 10153185 (Version 1)
Quarter: 2014Q2

REPORT INFORMATION
  Report Type: Spontaneous
  Country: US (occurrence: US)
  Receive Date: 20140505
  Receipt Date: 20140505
  Transmission Date: 20141212
  Serious: Yes (Hospitalization)
  Sender: FDA-Public Use
  Company Number: US-BAYER-2014-064691

PATIENT
  Age: 27 Year
  Sex: Female
  Weight: 77.1 kg

DRUGS (11)
  1. BEYAZ [Suspect]
  2. FLUCONAZOLE [Concomitant]
     Dosage: 150 MG, TABLETS, TAKE 1 TABLET NOW AND REPEAT IN 3 DAYS
     Route: 048
  3. FLUTICASONE [Concomitant]
     Dosage: 2 PUFFS EVERY MORNING
     Route: 045
  4. CIPROFLOXACIN [Concomitant]
     Dosage: 500 MG,TABLETS, TAKE 1 TABLET EVERY 12 HOURS FOR 10 DAYS
     Route: 048
  5. Z-PAK [Concomitant]
     Dosage: 250 MG, TABLETS, TAKE TWO TABLES AT ONCE TODAY THEN ONE TABLET FOR FOUR DAYS
  6. ADDERALL XR [Concomitant]
     Dosage: 20 MG, UNK
     Route: 048
  7. LEXAPRO [Concomitant]
  8. HYDROMORPHONE [Concomitant]
  9. ONDANSETRON [Concomitant]
  10. MORPHINE [Concomitant]
  11. PANTOPRAZOLE [Concomitant]

REACTIONS (1)
  - Mesenteric artery thrombosis [None]
